FAERS Safety Report 6331885-X (Version None)
Quarter: 2009Q3

REPORT INFORMATION
  Report Type: 
  Country: None (occurrence: None)
  Receive Date: 20090826
  Receipt Date: 20090819
  Transmission Date: 20100115
  Serious: Yes (Other)
  Sender: FDA-Public Use
  Company Number: ALL1-2009-02400

PATIENT
  Age: 51 Year
  Sex: Female
  Weight: 60.8 kg

DRUGS (3)
  1. LIALDA [Suspect]
     Indication: COLITIS ULCERATIVE
     Dosage: 4.8 G DAILY, ORAL
     Route: 048
     Dates: start: 20090501
  2. ASTELIN /00884002/  (AZELASTINE  HYDROCHLORIDE) [Concomitant]
  3. NASONEX [Concomitant]

REACTIONS (2)
  - DRY MOUTH [None]
  - HYPOTHYROIDISM [None]
